FAERS Safety Report 24432513 (Version 1)
Quarter: 2024Q4

REPORT INFORMATION
  Report Type: Spontaneous
  Country: BR (occurrence: BR)
  Receive Date: 20241014
  Receipt Date: 20241014
  Transmission Date: 20250114
  Serious: Yes (Hospitalization)
  Sender: NOVO NORDISK
  Company Number: BR-NOVOPROD-1294907

PATIENT
  Age: 52 Year
  Sex: Female

DRUGS (2)
  1. OZEMPIC [Suspect]
     Active Substance: SEMAGLUTIDE
     Indication: Hepatic steatosis
  2. OZEMPIC [Suspect]
     Active Substance: SEMAGLUTIDE
     Indication: Obesity
     Dosage: UNK

REACTIONS (3)
  - Road traffic accident [Unknown]
  - Hypoglycaemia [Unknown]
  - Product use in unapproved indication [Unknown]
